FAERS Safety Report 10098877 (Version 2)
Quarter: 2014Q2

REPORT INFORMATION
  Report Type: Spontaneous
  Country: US (occurrence: US)
  Receive Date: 20140423
  Receipt Date: 20140512
  Transmission Date: 20141212
  Serious: Yes (Life-Threatening)
  Sender: FDA-Public Use
  Company Number: US-CELGENEUS-163-21880-14043801

PATIENT
  Age: 70 Year
  Sex: Male

DRUGS (2)
  1. REVLIMID [Suspect]
     Indication: PLASMA CELL MYELOMA
     Dosage: 10 MILLIGRAM
     Route: 048
     Dates: start: 201402
  2. REVLIMID [Suspect]
     Dosage: 25 MILLIGRAM
     Route: 048
     Dates: start: 20140416, end: 20140505

REACTIONS (5)
  - Paraesthesia [Unknown]
  - Pain [Not Recovered/Not Resolved]
  - Neuropathy peripheral [Unknown]
  - Hypoaesthesia [Unknown]
  - Constipation [Not Recovered/Not Resolved]
